FAERS Safety Report 7086559-7 (Version None)
Quarter: 2010Q4

REPORT INFORMATION
  Report Type: 
  Country: None (occurrence: None)
  Receive Date: 20101105
  Receipt Date: 20101022
  Transmission Date: 20110411
  Serious: Yes (Hospitalization, Other)
  Sender: FDA-Public Use
  Company Number: PHHY2010US71404

PATIENT
  Sex: Male

DRUGS (1)
  1. GLEEVEC [Suspect]
     Dosage: 300 MG, QD
     Route: 048
     Dates: start: 20070201

REACTIONS (5)
  - FLUID RETENTION [None]
  - GAIT DISTURBANCE [None]
  - HEPATIC FAILURE [None]
  - IMPAIRED DRIVING ABILITY [None]
  - TRANSFUSION [None]
